FAERS Safety Report 17406348 (Version 1)
Quarter: 2020Q1

REPORT INFORMATION
  Report Type: Spontaneous
  Country: US (occurrence: US)
  Receive Date: 20200212
  Receipt Date: 20200212
  Transmission Date: 20200409
  Serious: No
  Sender: FDA-Public Use
  Company Number: US-ALLERGAN-1914321US

PATIENT
  Sex: Female

DRUGS (7)
  1. LEXAPRO [Concomitant]
     Active Substance: ESCITALOPRAM OXALATE
     Indication: DEPRESSION
     Dosage: UNK
     Dates: end: 201903
  2. GLIMEPIRIDE. [Concomitant]
     Active Substance: GLIMEPIRIDE
     Dosage: UNK
  3. WARFARIN [Concomitant]
     Active Substance: WARFARIN
  4. VIIBRYD [Suspect]
     Active Substance: VILAZODONE HYDROCHLORIDE
     Indication: DEPRESSION
     Dosage: ACTUAL: ONE 10MG AND ONE 20MG TABLET
     Route: 065
     Dates: start: 201902
  5. METOPROLOL. [Concomitant]
     Active Substance: METOPROLOL
     Indication: HYPERTENSION
     Dosage: UNK
  6. INSULIN [Concomitant]
     Active Substance: INSULIN NOS
     Dosage: UNK
  7. STATIN [Concomitant]
     Active Substance: UNSPECIFIED INGREDIENT
     Indication: BLOOD CHOLESTEROL INCREASED
     Dosage: UNK

REACTIONS (2)
  - Peripheral swelling [Not Recovered/Not Resolved]
  - Wrong technique in product usage process [Unknown]

NARRATIVE: CASE EVENT DATE: 2019
